FAERS Safety Report 21818773 (Version 6)
Quarter: 2024Q2

REPORT INFORMATION
  Report Type: Other
  Country: ES (occurrence: ES)
  Receive Date: 20230104
  Receipt Date: 20240507
  Transmission Date: 20240716
  Serious: Yes (Other)
  Sender: FDA-Public Use
  Company Number: ES-SAMSUNG BIOEPIS-SB-2022-27936

PATIENT

DRUGS (13)
  1. ADALIMUMAB [Suspect]
     Active Substance: ADALIMUMAB\ISOPROPYL ALCOHOL
     Indication: Alopecia scarring
     Dosage: 160 MILLIGRAM, WEEK ZERO
     Route: 058
  2. ADALIMUMAB [Suspect]
     Active Substance: ADALIMUMAB\ISOPROPYL ALCOHOL
     Indication: Alopecia scarring
     Dosage: 80 MILLIGRAM,WEEK TWO
     Route: 058
  3. ADALIMUMAB [Suspect]
     Active Substance: ADALIMUMAB\ISOPROPYL ALCOHOL
     Dosage: 40 MILLIGRAM, BIWEEKLY
     Route: 058
  4. ISOTRETINOIN [Suspect]
     Active Substance: ISOTRETINOIN
     Indication: Alopecia scarring
     Dosage: UNK
     Route: 065
  5. IXEKIZUMAB [Suspect]
     Active Substance: IXEKIZUMAB
     Indication: Alopecia scarring
     Dosage: 160 MILLIGRAM,AT WEEK ZERO
     Route: 058
  6. IXEKIZUMAB [Suspect]
     Active Substance: IXEKIZUMAB
     Dosage: 80 MILLIGRAM, FROM THE 16 WEEKS
     Route: 058
  7. IXEKIZUMAB [Suspect]
     Active Substance: IXEKIZUMAB
     Dosage: 80MG, AT WEEK TWO, FOUR, SIX, EIGHT, TEN, TWELVE
     Route: 058
  8. CLOBETASOL [Suspect]
     Active Substance: CLOBETASOL
     Indication: Alopecia scarring
     Dosage: UNK
     Route: 061
  9. TRIAMCINOLONE [Suspect]
     Active Substance: TRIAMCINOLONE
     Indication: Alopecia scarring
     Dosage: UNK
     Route: 065
  10. DOXYCYCLINE [Suspect]
     Active Substance: DOXYCYCLINE
     Indication: Alopecia scarring
     Dosage: UNK
     Route: 065
  11. CLINDAMYCIN [Suspect]
     Active Substance: CLINDAMYCIN
     Indication: Alopecia scarring
     Dosage: UNK
     Route: 065
  12. RIFAMPIN [Suspect]
     Active Substance: RIFAMPIN
     Indication: Alopecia scarring
     Dosage: UNK
     Route: 065
  13. DAPSONE [Suspect]
     Active Substance: DAPSONE
     Indication: Alopecia scarring
     Dosage: UNK
     Route: 048

REACTIONS (7)
  - Paradoxical drug reaction [Recovered/Resolved]
  - Alopecia scarring [Recovering/Resolving]
  - Condition aggravated [Unknown]
  - Drug effective for unapproved indication [Unknown]
  - Off label use [Unknown]
  - Drug ineffective [Unknown]
  - Skin candida [Unknown]
